FAERS Safety Report 25524590 (Version 1)
Quarter: 2025Q3

REPORT INFORMATION
  Report Type: Spontaneous
  Country: JP (occurrence: JP)
  Receive Date: 20250707
  Receipt Date: 20250707
  Transmission Date: 20251021
  Serious: Yes (Other)
  Sender: AMGEN
  Company Number: JP-AMGEN-JPNSP2025129531

PATIENT
  Age: 49 Year
  Sex: Female

DRUGS (5)
  1. PEGFILGRASTIM [Suspect]
     Active Substance: PEGFILGRASTIM
     Indication: Prophylaxis
     Route: 065
  2. CYCLOPHOSPHAMIDE [Concomitant]
     Active Substance: CYCLOPHOSPHAMIDE
  3. PACLITAXEL [Concomitant]
     Active Substance: PACLITAXEL
  4. DEXAMETHASONE [Concomitant]
     Active Substance: DEXAMETHASONE
     Indication: Prophylaxis
     Dosage: 20 MILLIGRAM, QD
  5. IRINOTECAN [Concomitant]
     Active Substance: IRINOTECAN

REACTIONS (3)
  - Acute kidney injury [Unknown]
  - Cell death [Unknown]
  - Leukocytosis [Unknown]
